FAERS Safety Report 9733118 (Version 1)
Quarter: 2013Q4

REPORT INFORMATION
  Report Type: Spontaneous
  Country: US (occurrence: US)
  Receive Date: 20131204
  Receipt Date: 20131204
  Transmission Date: 20140711
  Serious: No
  Sender: FDA-Public Use
  Company Number: US-009507513-1311USA008507

PATIENT
  Sex: Female

DRUGS (2)
  1. LIPTRUZET [Suspect]
     Dosage: UNK
     Route: 048
     Dates: end: 20131118
  2. ATORVASTATIN [Concomitant]

REACTIONS (2)
  - Muscle spasms [Recovering/Resolving]
  - Myalgia [Recovering/Resolving]
